FAERS Safety Report 5954782-8 (Version None)
Quarter: 2008Q4

REPORT INFORMATION
  Report Type: 
  Country: None (occurrence: None)
  Receive Date: 20081117
  Receipt Date: 20081017
  Transmission Date: 20090506
  Serious: No
  Sender: FDA-Public Use
  Company Number: US-BAYER-200831476NA

PATIENT
  Age: 47 Year
  Sex: Female

DRUGS (2)
  1. FLUDARA [Suspect]
     Indication: CHRONIC LYMPHOCYTIC LEUKAEMIA
  2. RITUXAN [Concomitant]
     Indication: CHRONIC LYMPHOCYTIC LEUKAEMIA

REACTIONS (3)
  - NAIL DISCOLOURATION [None]
  - OEDEMA PERIPHERAL [None]
  - SKIN BURNING SENSATION [None]
